FAERS Safety Report 6690448-7 (Version None)
Quarter: 2010Q2

REPORT INFORMATION
  Report Type: 
  Country: None (occurrence: None)
  Receive Date: 20100421
  Receipt Date: 20090624
  Transmission Date: 20101027
  Serious: No
  Sender: FDA-Public Use
  Company Number: US-ASTRAZENECA-2009UW17402

PATIENT
  Sex: Male

DRUGS (1)
  1. CASODEX [Suspect]
     Route: 048

REACTIONS (1)
  - NEOPLASM MALIGNANT [None]
